FAERS Safety Report 18718968 (Version 1)
Quarter: 2021Q1

REPORT INFORMATION
  Report Type: Spontaneous
  Country: US (occurrence: US)
  Receive Date: 20210108
  Receipt Date: 20210108
  Transmission Date: 20210419
  Serious: No
  Sender: FDA-Public Use
  Company Number: US-NOVOPROD-771149

PATIENT
  Age: 52 Year
  Sex: Male

DRUGS (2)
  1. RYBELSUS [Suspect]
     Active Substance: SEMAGLUTIDE
     Dosage: 7 MG
     Route: 048
     Dates: start: 2020
  2. RYBELSUS [Suspect]
     Active Substance: SEMAGLUTIDE
     Indication: GLUCOSE TOLERANCE IMPAIRED
     Dosage: UNK
     Route: 048
     Dates: start: 202010, end: 2020

REACTIONS (3)
  - Product use in unapproved indication [Unknown]
  - Breath odour [Unknown]
  - Taste disorder [Unknown]

NARRATIVE: CASE EVENT DATE: 2020
